FAERS Safety Report 7071658-6 (Version None)
Quarter: 2010Q4

REPORT INFORMATION
  Report Type: 
  Country: None (occurrence: None)
  Receive Date: 20101029
  Receipt Date: 20091002
  Transmission Date: 20110411
  Serious: No
  Sender: FDA-Public Use
  Company Number: A0810147A

PATIENT
  Age: 61 Year
  Sex: Female

DRUGS (5)
  1. ADVAIR DISKUS 100/50 [Suspect]
     Indication: ASTHMA
     Route: 055
  2. MOBIC [Concomitant]
  3. HYDROCHLOROTHIAZIDE [Concomitant]
  4. FLONASE [Concomitant]
  5. LISINOPRIL [Concomitant]

REACTIONS (1)
  - GINGIVAL PRURITUS [None]
